FAERS Safety Report 11353058 (Version 1)
Quarter: 2015Q3

REPORT INFORMATION
  Report Type: Spontaneous
  Country: US (occurrence: US)
  Receive Date: 20150807
  Receipt Date: 20150807
  Transmission Date: 20151125
  Serious: No
  Sender: FDA-Public Use
  Company Number: US-JNJFOC-20150307506

PATIENT
  Age: 53 Year
  Sex: Female
  Weight: 61.24 kg

DRUGS (2)
  1. MENS ROGAINE EXTRA STRENGTH [Suspect]
     Active Substance: MINOXIDIL
     Indication: ALOPECIA
     Dosage: AMOUNT RECOMMENDED
     Route: 061
  2. MENS ROGAINE EXTRA STRENGTH [Suspect]
     Active Substance: MINOXIDIL
     Route: 061

REACTIONS (6)
  - Wrong patient received medication [Recovered/Resolved]
  - Skin exfoliation [Recovered/Resolved]
  - Alopecia [Recovered/Resolved]
  - Skin irritation [Recovered/Resolved]
  - Hair growth abnormal [Recovered/Resolved]
  - Medication residue present [Recovered/Resolved]
